FAERS Safety Report 7357406-0 (Version None)
Quarter: 2011Q1

REPORT INFORMATION
  Report Type: 
  Country: None (occurrence: None)
  Receive Date: 20110308
  Receipt Date: 20110221
  Transmission Date: 20110831
  Serious: Yes (Disabling)
  Sender: FDA-Public Use
  Company Number: 2011P1004554

PATIENT
  Age: 53 Year
  Sex: Female
  Weight: 97.5234 kg

DRUGS (5)
  1. TRAZODONE [Concomitant]
  2. FENTANYL [Suspect]
     Indication: MYELITIS
     Dosage: 1 PATCH;Q3D;TDER
     Route: 062
     Dates: start: 20020101, end: 20100901
  3. FENTANYL [Suspect]
     Indication: NEURALGIA
     Dosage: 1 PATCH;Q3D;TDER
     Route: 062
     Dates: start: 20020101, end: 20100901
  4. FENTANYL [Suspect]
     Indication: MULTIPLE MYELOMA
     Dosage: 1 PATCH;Q3D;TDER
     Route: 062
     Dates: start: 20020101, end: 20100901
  5. SUMATRIPTAN SUCCINATE (IMITREX) [Concomitant]

REACTIONS (8)
  - MALAISE [None]
  - NAUSEA [None]
  - ASTHENIA [None]
  - DEPRESSION [None]
  - WITHDRAWAL SYNDROME [None]
  - PRODUCT ADHESION ISSUE [None]
  - FATIGUE [None]
  - DIZZINESS [None]
